FAERS Safety Report 20864577 (Version 1)
Quarter: 2022Q2

REPORT INFORMATION
  Report Type: Spontaneous
  Country: JP (occurrence: JP)
  Receive Date: 20220524
  Receipt Date: 20220524
  Transmission Date: 20220720
  Serious: Yes (Other)
  Sender: FDA-Public Use
  Company Number: JP-SUN PHARMACEUTICAL INDUSTRIES LTD-2022RR-337593

PATIENT
  Age: 64 Year
  Sex: Female

DRUGS (2)
  1. GEMCITABINE [Suspect]
     Active Substance: GEMCITABINE
     Indication: Acinar cell carcinoma of pancreas
     Dosage: 1000 MILLIGRAM/SQ. METER, DAYS 1, 8 AND 15 EVERY 4 WEEKS, 2 CYCLES
     Route: 065
  2. PACLITAXEL [Suspect]
     Active Substance: PACLITAXEL
     Indication: Chemotherapy
     Dosage: 125 MILLIGRAM/SQ. METER, 1DOSE/4WEEKS, ON DAYS 1, 8, 15, FOR 2 CYCLES
     Route: 065

REACTIONS (6)
  - Myelosuppression [Unknown]
  - Fatigue [Unknown]
  - Neuropathy peripheral [Unknown]
  - Alopecia [Unknown]
  - Diarrhoea [Unknown]
  - Therapeutic product effect incomplete [Unknown]
